FAERS Safety Report 25205696 (Version 1)
Quarter: 2025Q2

REPORT INFORMATION
  Report Type: Spontaneous
  Country: US (occurrence: US)
  Receive Date: 20250417
  Receipt Date: 20250417
  Transmission Date: 20250717
  Serious: No
  Sender: ALEXION PHARMACEUTICALS
  Company Number: US-AstraZeneca-CH-00849936A

PATIENT

DRUGS (9)
  1. FASENRA [Suspect]
     Active Substance: BENRALIZUMAB
     Indication: Asthma
     Dosage: 30 MILLIGRAM, Q8W
  2. ALBUTEROL [Concomitant]
     Active Substance: ALBUTEROL
     Route: 065
  3. AMITRIPTYLINE [Concomitant]
     Active Substance: AMITRIPTYLINE
     Route: 065
  4. UMECLIDINIUM BROMIDE\VILANTEROL TRIFENATATE [Concomitant]
     Active Substance: UMECLIDINIUM BROMIDE\VILANTEROL TRIFENATATE
     Route: 065
  5. IPRATROPIUM [Concomitant]
     Active Substance: IPRATROPIUM
     Route: 065
  6. MONTELUKAST [Concomitant]
     Active Substance: MONTELUKAST
     Route: 065
  7. NYSTATIN [Concomitant]
     Active Substance: NYSTATIN
     Route: 065
  8. SUMATRIPTAN [Concomitant]
     Active Substance: SUMATRIPTAN
     Route: 065
  9. VITAMIN D3 [Concomitant]
     Active Substance: CHOLECALCIFEROL
     Route: 065

REACTIONS (2)
  - Asthma [Unknown]
  - Quality of life decreased [Unknown]
